FAERS Safety Report 12183709 (Version 3)
Quarter: 2016Q2

REPORT INFORMATION
  Report Type: Spontaneous
  Country: FR (occurrence: FR)
  Receive Date: 20160316
  Receipt Date: 20160512
  Transmission Date: 20160815
  Serious: Yes (Other)
  Sender: FDA-Public Use
  Company Number: FR-PFIZER INC-2016152008

PATIENT
  Age: 27 Year
  Sex: Female
  Weight: 50 kg

DRUGS (2)
  1. TRINORDIOL [Suspect]
     Active Substance: ETHINYL ESTRADIOL\LEVONORGESTREL
     Dosage: 1 DF (50-75-125/30-40-30 MICROGR), DAILY FOR 21 DAYS
     Dates: start: 201602, end: 20160321
  2. TRINORDIOL [Suspect]
     Active Substance: ETHINYL ESTRADIOL\LEVONORGESTREL
     Indication: CONTRACEPTION
     Dosage: (50-75-125/30-40-30 MICROGR), UNK
     Dates: start: 2014

REACTIONS (2)
  - Retinal detachment [Recovered/Resolved with Sequelae]
  - Eye pain [Recovered/Resolved]

NARRATIVE: CASE EVENT DATE: 2014
